FAERS Safety Report 7142722-8 (Version None)
Quarter: 2010Q4

REPORT INFORMATION
  Report Type: 
  Country: None (occurrence: None)
  Receive Date: 20101207
  Receipt Date: 20101125
  Transmission Date: 20110411
  Serious: Yes (Other)
  Sender: FDA-Public Use
  Company Number: US-WATSON-2010-15473

PATIENT

DRUGS (1)
  1. FLUOXETINE [Suspect]
     Indication: PRODUCT USED FOR UNKNOWN INDICATION
     Dosage: UNK
     Route: 063

REACTIONS (5)
  - DRUG LEVEL INCREASED [None]
  - FEEDING DISORDER NEONATAL [None]
  - IRRITABILITY [None]
  - POOR SUCKING REFLEX [None]
  - SLEEP DISORDER [None]
